FAERS Safety Report 4460596-0 (Version None)
Quarter: 2004Q3

REPORT INFORMATION
  Report Type: 
  Country: None (occurrence: None)
  Receive Date: 20040928
  Receipt Date: 20040825
  Transmission Date: 20050211
  Serious: No
  Sender: FDA-Public Use
  Company Number: US-GLAXOSMITHKLINE-A0523488A

PATIENT
  Age: 65 Year
  Sex: Female

DRUGS (5)
  1. ADVAIR DISKUS 100/50 [Suspect]
     Indication: ASTHMA
     Route: 055
     Dates: start: 20030401
  2. FLOVENT [Suspect]
     Indication: ASTHMA
     Route: 055
  3. THYROID TAB [Concomitant]
  4. ESTRACE [Concomitant]
  5. SINGULAIR [Concomitant]

REACTIONS (2)
  - ORAL CANDIDIASIS [None]
  - ORAL PAIN [None]
